FAERS Safety Report 23355628 (Version 1)
Quarter: 2024Q1

REPORT INFORMATION
  Report Type: Report from Study
  Country: US (occurrence: US)
  Receive Date: 20240102
  Receipt Date: 20240102
  Transmission Date: 20240410
  Serious: Yes (Hospitalization)
  Sender: FDA-Public Use
  Company Number: US-ABBVIE-5565975

PATIENT
  Sex: Female

DRUGS (1)
  1. RINVOQ [Suspect]
     Active Substance: UPADACITINIB
     Indication: Crohn^s disease
     Dosage: LAST ADMINISTRATION DATE: 2023
     Route: 048
     Dates: start: 20231101

REACTIONS (5)
  - Renal disorder [Unknown]
  - Haematuria [Not Recovered/Not Resolved]
  - Pain [Unknown]
  - Lymph node pain [Unknown]
  - Lymphadenopathy [Unknown]

NARRATIVE: CASE EVENT DATE: 20230101
